FAERS Safety Report 7351146-X (Version None)
Quarter: 2011Q1

REPORT INFORMATION
  Report Type: 
  Country: None (occurrence: None)
  Receive Date: 20110304
  Receipt Date: 20110225
  Transmission Date: 20110831
  Serious: Yes (Other)
  Sender: FDA-Public Use
  Company Number: 007548

PATIENT
  Sex: Female
  Weight: 121.3 kg

DRUGS (6)
  1. DARVOCET [Concomitant]
  2. CERTOLIZUMAB PEGOL [Suspect]
     Indication: RHEUMATOID ARTHRITIS
     Dosage: (200 MG 1X/2 WEEKS SUBCUTANEOUS)
     Route: 058
     Dates: start: 20090421
  3. BIAXIN [Concomitant]
  4. PAXIL [Concomitant]
  5. VICODIN [Concomitant]
  6. CIPROFLOXACIN [Concomitant]

REACTIONS (2)
  - SINUSITIS [None]
  - PSEUDOMONAS INFECTION [None]
